FAERS Safety Report 23090976 (Version 2)
Quarter: 2024Q1

REPORT INFORMATION
  Report Type: Spontaneous
  Country: US (occurrence: US)
  Receive Date: 20231020
  Receipt Date: 20240313
  Transmission Date: 20240409
  Serious: Yes (Other)
  Sender: FDA-Public Use
  Company Number: US-SCALL-2023-US-034282

PATIENT
  Age: 66 Year
  Sex: Female

DRUGS (1)
  1. SUCRALFATE ORAL SUSPENSION [Suspect]
     Active Substance: SUCRALFATE
     Indication: Product used for unknown indication
     Dosage: UNSPECIFIED DOSE TWICE DAILY, THEN DECREASED TO ONCE DAILY
     Route: 048
     Dates: start: 202210

REACTIONS (6)
  - Vomiting [Unknown]
  - Diarrhoea [Unknown]
  - Abdominal pain upper [Recovered/Resolved]
  - Bacterial infection [Unknown]
  - Dehydration [Unknown]
  - Recalled product administered [Unknown]

NARRATIVE: CASE EVENT DATE: 20230101
